FAERS Safety Report 5737952-3 (Version None)
Quarter: 2008Q2

REPORT INFORMATION
  Report Type: 
  Country: None (occurrence: None)
  Receive Date: 20080509
  Receipt Date: 20080416
  Transmission Date: 20081010
  Serious: Yes (Other)
  Sender: FDA-Public Use
  Company Number: TPH-00039

PATIENT
  Age: 22 Year
  Sex: Female

DRUGS (1)
  1. TRIQUILAR [Suspect]
     Indication: ORAL CONTRACEPTION
     Dosage: ORAL
     Route: 048
     Dates: start: 20070901, end: 20071228

REACTIONS (12)
  - ABDOMINAL PAIN [None]
  - ABORTION THREATENED [None]
  - ANTEPARTUM HAEMORRHAGE [None]
  - ASTHENIA [None]
  - BLOOD PRESSURE FLUCTUATION [None]
  - DRUG EXPOSURE DURING PREGNANCY [None]
  - DRUG INEFFECTIVE [None]
  - DYSPNOEA [None]
  - HYPERTENSION [None]
  - MALAISE [None]
  - PAIN [None]
  - PREGNANCY ON ORAL CONTRACEPTIVE [None]
